FAERS Safety Report 20322007 (Version 1)
Quarter: 2022Q1

REPORT INFORMATION
  Report Type: Spontaneous
  Country: FR (occurrence: FR)
  Receive Date: 20220111
  Receipt Date: 20220111
  Transmission Date: 20220424
  Serious: Yes (Death, Hospitalization)
  Sender: FDA-Public Use
  Company Number: FR-Atnahs Limited-ATNAHS20211233462

PATIENT
  Age: 26 Year
  Sex: Male

DRUGS (9)
  1. ARIPIPRAZOLE [Interacting]
     Active Substance: ARIPIPRAZOLE
     Indication: Mania
     Dosage: 10 MG / DAY
     Route: 048
     Dates: start: 20211026, end: 20211104
  2. CYAMEMAZINE [Interacting]
     Active Substance: CYAMEMAZINE
     Indication: Mania
     Dosage: 50 GTT DROPS, Q6H (200 DROPS / DAY)
     Route: 048
     Dates: start: 20211016, end: 20211019
  3. LOXAPINE [Interacting]
     Active Substance: LOXAPINE
     Indication: Mania
     Dosage: 325 GTT DROPS (75/75/75/75 MG)
     Route: 048
     Dates: start: 20211019, end: 20211106
  4. HALDOL [Interacting]
     Active Substance: HALOPERIDOL
     Indication: Mania
     Dosage: UNK, QD (100/50/100 MG / D)
     Route: 048
     Dates: start: 20211106
  5. HALDOL [Interacting]
     Active Substance: HALOPERIDOL
     Dosage: 50 MILLIGRAM, Q6H
     Route: 048
     Dates: start: 20211106
  6. ZOPICLONE [Interacting]
     Active Substance: ZOPICLONE
     Indication: Mania
     Dosage: 7.5 MILLIGRAM, HS (IN THE EVENING)
     Route: 048
     Dates: start: 20211019
  7. TRIMEPRAZINE [Interacting]
     Active Substance: TRIMEPRAZINE
     Indication: Mania
     Dosage: 20 GTT DROPS, HS (IN THE EVENING)
     Route: 048
     Dates: start: 20211029
  8. VALIUM [Interacting]
     Active Substance: DIAZEPAM
     Indication: Mania
     Dosage: 15/30/30/30 DROPS / DAY
     Route: 048
     Dates: start: 20211029
  9. RISPERDAL [Interacting]
     Active Substance: RISPERIDONE
     Indication: Mania
     Dosage: 4 MG / DAY
     Route: 048
     Dates: start: 20211016, end: 20211029

REACTIONS (2)
  - Drug interaction [Fatal]
  - Ileus paralytic [Fatal]

NARRATIVE: CASE EVENT DATE: 20211108
